FAERS Safety Report 10135938 (Version 1)
Quarter: 2014Q2

REPORT INFORMATION
  Report Type: Spontaneous
  Country: US (occurrence: US)
  Receive Date: 20140428
  Receipt Date: 20140428
  Transmission Date: 20141212
  Serious: Yes (Other)
  Sender: FDA-Public Use
  Company Number: CHPA2014US005564

PATIENT
  Age: 66 Year
  Sex: Female

DRUGS (6)
  1. GAS-X [Suspect]
     Indication: ABDOMINAL DISTENSION
     Dosage: 2 DF, QD
     Route: 048
     Dates: start: 2012
  2. GAS-X [Suspect]
     Indication: FLATULENCE
  3. GAS-X [Suspect]
     Indication: ERUCTATION
  4. PROCHLORPERAZINE [Suspect]
     Dosage: 25 MG, ONCE/SINGLE
     Dates: start: 20140415, end: 20140415
  5. PROMETHAZINE [Suspect]
     Indication: GASTROENTERITIS VIRAL
     Dosage: 1 DF, BID
     Dates: start: 20140414
  6. PROMETHAZINE [Suspect]
     Indication: VOMITING

REACTIONS (3)
  - Gastroenteritis viral [Recovering/Resolving]
  - Vomiting [Recovered/Resolved]
  - Rectal discharge [Not Recovered/Not Resolved]
